FAERS Safety Report 11118616 (Version 1)
Quarter: 2015Q2

REPORT INFORMATION
  Report Type: Spontaneous
  Country: US (occurrence: US)
  Receive Date: 20150518
  Receipt Date: 20150518
  Transmission Date: 20150821
  Serious: No
  Sender: FDA-Public Use
  Company Number: US-ROXANE LABORATORIES, INC.-2015-RO-00818RO

PATIENT
  Age: 44 Year
  Sex: Female

DRUGS (2)
  1. LEVOFLOXACIN. [Suspect]
     Active Substance: LEVOFLOXACIN
     Indication: PNEUMONIA
     Route: 065
  2. PREDNISONE. [Suspect]
     Active Substance: PREDNISONE
     Indication: PNEUMONIA
     Route: 065
     Dates: start: 20150427, end: 20150510

REACTIONS (5)
  - Euphoric mood [Unknown]
  - Tinnitus [Unknown]
  - Nausea [Unknown]
  - Dizziness [Unknown]
  - Appetite disorder [Unknown]

NARRATIVE: CASE EVENT DATE: 20150511
